FAERS Safety Report 16799052 (Version 3)
Quarter: 2020Q1

REPORT INFORMATION
  Report Type: Spontaneous
  Country: US (occurrence: US)
  Receive Date: 20190912
  Receipt Date: 20200121
  Transmission Date: 20200409
  Serious: No
  Sender: FDA-Public Use
  Company Number: US-PFIZER INC-2018326694

PATIENT
  Sex: Male
  Weight: 81.65 kg

DRUGS (4)
  1. EFFEXOR XR [Suspect]
     Active Substance: VENLAFAXINE HYDROCHLORIDE
     Indication: MAJOR DEPRESSION
     Dosage: 150 MG, 2X/DAY
     Route: 048
  2. EFFEXOR XR [Suspect]
     Active Substance: VENLAFAXINE HYDROCHLORIDE
     Dosage: 300 MG, 1X/DAY (2 CAPSULES WITH FOOD ONCE A DAY IN THE MORNING)
     Route: 048
  3. EFFEXOR XR [Suspect]
     Active Substance: VENLAFAXINE HYDROCHLORIDE
     Indication: ESSENTIAL HYPERTENSION
     Dosage: 150 MG, UNK
     Route: 048
  4. EFFEXOR XR [Suspect]
     Active Substance: VENLAFAXINE HYDROCHLORIDE
     Indication: ANXIETY
     Dosage: 300 MG, 1X/DAY (2 CAPSULES WITH FOOD ONCE A DAY IN THE MORNING)
     Route: 048

REACTIONS (3)
  - Product dose omission [Unknown]
  - Withdrawal syndrome [Unknown]
  - Prescribed overdose [Unknown]
